FAERS Safety Report 19667152 (Version 1)
Quarter: 2021Q3

REPORT INFORMATION
  Report Type: Spontaneous
  Country: FR (occurrence: FR)
  Receive Date: 20210806
  Receipt Date: 20210806
  Transmission Date: 20211014
  Serious: Yes (Other)
  Sender: FDA-Public Use
  Company Number: FR-ACCORD-234374

PATIENT
  Age: 66 Year
  Sex: Male
  Weight: 62 kg

DRUGS (3)
  1. ALIMTA [Suspect]
     Active Substance: PEMETREXED DISODIUM
     Indication: LUNG ADENOCARCINOMA STAGE III
     Route: 042
     Dates: start: 20210205, end: 20210205
  2. CARBOPLATIN ACCORD [Suspect]
     Active Substance: CARBOPLATIN
     Indication: LUNG ADENOCARCINOMA STAGE III
     Dosage: 10 MG / ML, SOLUTION FOR INFUSION
     Route: 042
     Dates: start: 20210205, end: 20210205
  3. KEYTRUDA [Suspect]
     Active Substance: PEMBROLIZUMAB
     Indication: LUNG ADENOCARCINOMA STAGE III
     Route: 042
     Dates: start: 20210205, end: 20210205

REACTIONS (3)
  - Hypertension [Recovered/Resolved]
  - Pruritus [Recovered/Resolved]
  - Hypoxia [Recovered/Resolved]

NARRATIVE: CASE EVENT DATE: 20210205
